FAERS Safety Report 5075721-0 (Version None)
Quarter: 2006Q3

REPORT INFORMATION
  Report Type: 
  Country: None (occurrence: None)
  Receive Date: 20060807
  Receipt Date: 20060729
  Transmission Date: 20061208
  Serious: Yes (Other)
  Sender: FDA-Public Use
  Company Number: 2006092712

PATIENT
  Sex: Male

DRUGS (4)
  1. LIPITOR [Suspect]
     Indication: DRUG USE FOR UNKNOWN INDICATION
     Dosage: 40 MG (40 MG, 1 IN 1 D)
     Dates: start: 19980101
  2. ALTACE [Concomitant]
  3. ZETIA [Concomitant]
  4. AMITRIPTYLINE (AMITRIPTYLINE) [Concomitant]

REACTIONS (1)
  - ADVERSE EVENT [None]
